FAERS Safety Report 4344993-X (Version None)
Quarter: 2004Q2

REPORT INFORMATION
  Report Type: 
  Country: None (occurrence: None)
  Receive Date: 20040421
  Receipt Date: 20040421
  Transmission Date: 20050107
  Serious: No
  Sender: FDA-Public Use
  Company Number: None

PATIENT
  Age: 37 Year
  Sex: Female
  Weight: 68.9467 kg

DRUGS (1)
  1. DURAGESIC [Suspect]
     Indication: BACK INJURY
     Dosage: 75 MCG EVERY 72 H TOPICAL
     Route: 061
     Dates: start: 20040402, end: 20040408

REACTIONS (7)
  - ASTHENIA [None]
  - HEADACHE [None]
  - IMPAIRED WORK ABILITY [None]
  - NAUSEA [None]
  - PAIN [None]
  - PHARMACEUTICAL PRODUCT COMPLAINT [None]
  - VOMITING [None]
